FAERS Safety Report 12530790 (Version 1)
Quarter: 2016Q3

REPORT INFORMATION
  Report Type: Spontaneous
  Country: US (occurrence: US)
  Receive Date: 20160706
  Receipt Date: 20160706
  Transmission Date: 20161109
  Serious: Yes (Hospitalization, Other)
  Sender: FDA-Public Use
  Company Number: US-AKRON, INC.-1054708

PATIENT
  Age: 16 Year
  Sex: Female

DRUGS (1)
  1. FLUOXETINE HCL ORAL SOLUTION AKORN, INC. [Suspect]
     Active Substance: FLUOXETINE HYDROCHLORIDE
     Indication: ANXIETY

REACTIONS (6)
  - Obsessive-compulsive disorder [Unknown]
  - Anxiety [Recovering/Resolving]
  - Depression [Unknown]
  - Autism spectrum disorder [Not Recovered/Not Resolved]
  - Polycystic ovaries [Unknown]
  - Learning disability [Not Recovered/Not Resolved]
